FAERS Safety Report 7639056-1 (Version None)
Quarter: 2011Q3

REPORT INFORMATION
  Report Type: 
  Country: None (occurrence: None)
  Receive Date: 20110727
  Receipt Date: 20110714
  Transmission Date: 20111222
  Serious: Yes (Hospitalization)
  Sender: FDA-Public Use
  Company Number: GB-UCBSA-037233

PATIENT
  Sex: Female
  Weight: 64 kg

DRUGS (2)
  1. OMEPRAZOLE [Concomitant]
  2. LEVETIRACETAM [Suspect]
     Indication: GRAND MAL CONVULSION
     Route: 048
     Dates: start: 20110531, end: 20110613

REACTIONS (1)
  - HYPOMANIA [None]
